FAERS Safety Report 17965876 (Version 1)
Quarter: 2020Q2

REPORT INFORMATION
  Report Type: Spontaneous
  Country: DE (occurrence: DE)
  Receive Date: 20200630
  Receipt Date: 20200630
  Transmission Date: 20200714
  Serious: Yes (Other)
  Sender: FDA-Public Use
  Company Number: DE-GE HEALTHCARE LIFE SCIENCES-2020CSU002330

PATIENT

DRUGS (3)
  1. ACCUPAQUE [Suspect]
     Active Substance: IOHEXOL
     Indication: COMPUTERISED TOMOGRAM THORAX
     Dosage: 50 ML, SINGLE
     Route: 042
     Dates: start: 20200529, end: 20200529
  2. ACCUPAQUE [Suspect]
     Active Substance: IOHEXOL
     Indication: PULMONARY EMBOLISM
  3. L-THYROXINE [LEVOTHYROXINE] [Concomitant]
     Active Substance: LEVOTHYROXINE
     Dosage: UNK
     Route: 048
     Dates: start: 2003

REACTIONS (4)
  - Back pain [Recovered/Resolved]
  - Neuralgia [Recovered/Resolved]
  - Muscle rigidity [Recovered/Resolved]
  - Urticaria [Recovered/Resolved]

NARRATIVE: CASE EVENT DATE: 20200531
